FAERS Safety Report 5460122-3 (Version None)
Quarter: 2007Q3

REPORT INFORMATION
  Report Type: 
  Country: None (occurrence: None)
  Receive Date: 20070919
  Receipt Date: 20070910
  Transmission Date: 20080115
  Serious: Yes (Hospitalization)
  Sender: FDA-Public Use
  Company Number: GB-ASTRAZENECA-2007GB01864

PATIENT
  Age: 57 Year
  Sex: Female

DRUGS (7)
  1. ROSUVASTATIN [Suspect]
     Indication: HYPERCHOLESTEROLAEMIA
     Route: 048
     Dates: end: 20070720
  2. ASPIRIN [Concomitant]
     Indication: MYOCARDIAL ISCHAEMIA
     Route: 048
  3. BENDROFLUAZIDE [Concomitant]
     Indication: HYPERTENSION
     Route: 048
  4. CO-CODAMOL [Concomitant]
     Route: 048
  5. GABAPENTIN [Concomitant]
     Indication: NEURALGIA
     Route: 048
  6. TEGRETOL [Concomitant]
     Indication: NEURALGIA
     Route: 048
  7. TOLTERODINE TARTRATE [Concomitant]
     Route: 048

REACTIONS (4)
  - CREATININE URINE INCREASED [None]
  - FLANK PAIN [None]
  - MALAISE [None]
  - RHABDOMYOLYSIS [None]
